FAERS Safety Report 7714942-2 (Version None)
Quarter: 2011Q3

REPORT INFORMATION
  Report Type: 
  Country: None (occurrence: None)
  Receive Date: 20110829
  Receipt Date: 20110323
  Transmission Date: 20111222
  Serious: No
  Sender: FDA-Public Use
  Company Number: US-GLAXOSMITHKLINE-A0920584A

PATIENT
  Sex: Female

DRUGS (1)
  1. ZOVIRAX [Suspect]
     Indication: VIITH NERVE PARALYSIS
     Dosage: 5TAB PER DAY
     Route: 048

REACTIONS (1)
  - THERAPEUTIC RESPONSE UNEXPECTED [None]
